FAERS Safety Report 4542258-4 (Version None)
Quarter: 2004Q4

REPORT INFORMATION
  Report Type: 
  Country: None (occurrence: None)
  Receive Date: 20041227
  Receipt Date: 20041215
  Transmission Date: 20050328
  Serious: Yes (Life-Threatening, Other)
  Sender: FDA-Public Use
  Company Number: HQWYE463719JAN04

PATIENT
  Age: 48 Year
  Sex: Female
  Weight: 83.91 kg

DRUGS (5)
  1. PREMARIN [Suspect]
     Dosage: 1.25 MG AS NOTED IN MEDICAL RECORDS 2001, ORAL
     Route: 048
  2. PHENTERMINE [Suspect]
  3. PONDIMIN [Suspect]
     Dosage: ORAL
     Route: 048
  4. PREMPRO [Suspect]
     Dosage: 0.625MG/2.5MG STILL ON PRODUCT IN AUG-2002, ORAL
     Route: 048
  5. REDUX [Suspect]
     Dosage: ORAL
     Route: 048

REACTIONS (7)
  - AORTIC VALVE INCOMPETENCE [None]
  - BLOOD CHOLESTEROL INCREASED [None]
  - BLOOD TRIGLYCERIDES INCREASED [None]
  - BREAST DISORDER FEMALE [None]
  - MITRAL VALVE INCOMPETENCE [None]
  - PULMONARY HYPERTENSION [None]
  - SUBCUTANEOUS ABSCESS [None]
